FAERS Safety Report 9022544 (Version 1)
Quarter: 2013Q1

REPORT INFORMATION
  Report Type: Spontaneous
  Country: US (occurrence: US)
  Receive Date: 20130118
  Receipt Date: 20130118
  Transmission Date: 20140127
  Serious: No
  Sender: FDA-Public Use
  Company Number: US-GLAXOSMITHKLINE-A0969176A

PATIENT
  Age: 36 Year
  Sex: Female

DRUGS (2)
  1. PROMACTA [Suspect]
     Indication: AUTOIMMUNE THROMBOCYTOPENIA
     Dosage: 50MG PER DAY
     Route: 048
     Dates: start: 20110524
  2. OSCAL [Concomitant]

REACTIONS (3)
  - Lip dry [Not Recovered/Not Resolved]
  - Menstruation irregular [Unknown]
  - Menorrhagia [Unknown]
